FAERS Safety Report 16462824 (Version 2)
Quarter: 2019Q2

REPORT INFORMATION
  Report Type: Spontaneous
  Country: DE (occurrence: DE)
  Receive Date: 20190621
  Receipt Date: 20190626
  Transmission Date: 20190711
  Serious: Yes (Other)
  Sender: FDA-Public Use
  Company Number: DE-TEVA-2019-DE-1066633

PATIENT
  Age: 65 Year
  Sex: Female

DRUGS (2)
  1. VENLAFAXIN-NEURAXPHARM 37,5 MG RETARD KAPSELN [Suspect]
     Active Substance: VENLAFAXINE HYDROCHLORIDE
     Dosage: 1 CAPSULE DAILY
     Route: 048
  2. VENLAFAXIN 37,5MG RETARDKAPSELN (UNBEKANNTER HERSTELLER) [Suspect]
     Active Substance: VENLAFAXINE HYDROCHLORIDE

REACTIONS (5)
  - Anaphylactoid reaction [Recovered/Resolved]
  - Rash pustular [Recovered/Resolved]
  - Urticaria [Recovered/Resolved]
  - Condition aggravated [Recovered/Resolved]
  - Dermatitis allergic [Recovered/Resolved]

NARRATIVE: CASE EVENT DATE: 201904
